FAERS Safety Report 7440437-X (Version None)
Quarter: 2011Q2

REPORT INFORMATION
  Report Type: 
  Country: None (occurrence: None)
  Receive Date: 20110427
  Receipt Date: 20110422
  Transmission Date: 20111010
  Serious: Yes (Hospitalization, Other)
  Sender: FDA-Public Use
  Company Number: US-AMGEN-USASP2011015115

PATIENT
  Age: 45 Year
  Sex: Male
  Weight: 95.692 kg

DRUGS (7)
  1. OMEPRAZOLE [Concomitant]
  2. OMEGA 3                            /00931501/ [Concomitant]
  3. ASPIRIN [Concomitant]
  4. NPLATE [Suspect]
     Indication: IDIOPATHIC THROMBOCYTOPENIC PURPURA
     Dosage: 600 A?G, QWK
     Route: 058
     Dates: start: 20100520
  5. FOLATE [Concomitant]
  6. SIMVASTATIN [Concomitant]
  7. NEURONTIN [Concomitant]

REACTIONS (24)
  - HYPERGAMMAGLOBULINAEMIA BENIGN MONOCLONAL [None]
  - HAEMOCHROMATOSIS [None]
  - VISION BLURRED [None]
  - DIPLOPIA [None]
  - NEUROPATHY PERIPHERAL [None]
  - CHILLS [None]
  - HAEMORRHAGE [None]
  - LETHARGY [None]
  - MENTAL STATUS CHANGES [None]
  - THROMBOSIS [None]
  - HEMISENSORY NEGLECT [None]
  - CRANIAL NERVE PARALYSIS [None]
  - ATRIAL SEPTAL DEFECT [None]
  - URTICARIA [None]
  - EPISTAXIS [None]
  - RASH GENERALISED [None]
  - HYPERHIDROSIS [None]
  - CONFUSIONAL STATE [None]
  - BACK PAIN [None]
  - HEADACHE [None]
  - CEREBROVASCULAR ACCIDENT [None]
  - PLATELET COUNT DECREASED [None]
  - PYREXIA [None]
  - HYPERSOMNIA [None]
